FAERS Safety Report 20908466 (Version 1)
Quarter: 2022Q2

REPORT INFORMATION
  Report Type: Spontaneous
  Country: DE (occurrence: DE)
  Receive Date: 20220603
  Receipt Date: 20220603
  Transmission Date: 20220721
  Serious: Yes (Other)
  Sender: FDA-Public Use
  Company Number: DE-002147023-NVSC2022DE111482

PATIENT
  Age: 75 Year
  Sex: Female

DRUGS (3)
  1. EXEMESTANE [Suspect]
     Active Substance: EXEMESTANE
     Indication: Invasive lobular breast carcinoma
     Dosage: UNK
     Route: 065
     Dates: start: 202202
  2. EVEROLIMUS [Suspect]
     Active Substance: EVEROLIMUS
     Indication: Invasive lobular breast carcinoma
     Dosage: UNK
     Route: 065
     Dates: start: 202202
  3. METFORMIN [Concomitant]
     Active Substance: METFORMIN HYDROCHLORIDE
     Indication: Diabetes mellitus
     Dosage: UNK
     Route: 065

REACTIONS (2)
  - Malignant neoplasm progression [Unknown]
  - Invasive lobular breast carcinoma [Unknown]
